FAERS Safety Report 13449883 (Version 1)
Quarter: 2017Q2

REPORT INFORMATION
  Report Type: Spontaneous
  Country: US (occurrence: US)
  Receive Date: 20170417
  Receipt Date: 20170417
  Transmission Date: 20170830
  Serious: No
  Sender: FDA-Public Use
  Company Number: US-BION-20160202

PATIENT
  Age: 75 Year
  Sex: Female
  Weight: 58.06 kg

DRUGS (3)
  1. ALEVE [Suspect]
     Active Substance: NAPROXEN SODIUM
     Indication: BLOOD SODIUM DECREASED
     Dosage: 1 DOSAGE FORM TAKEN TWICE DAILY
     Route: 048
  2. UNKNOWN AXIETY PILL [Concomitant]
  3. HIGH BLOOD PRESSURE MEDICATION [Concomitant]
     Active Substance: UNSPECIFIED INGREDIENT

REACTIONS (4)
  - Product size issue [Unknown]
  - Incorrect drug administration duration [Unknown]
  - Product use in unapproved indication [Unknown]
  - Dysphagia [Unknown]
